FAERS Safety Report 11730183 (Version 1)
Quarter: 2015Q4

REPORT INFORMATION
  Report Type: Spontaneous
  Country: DK (occurrence: GB)
  Receive Date: 20151112
  Receipt Date: 20151112
  Transmission Date: 20160304
  Serious: Yes (Death, Other)
  Sender: FDA-Public Use
  Company Number: GB-FRI-1000080748

PATIENT
  Age: 68 Year
  Sex: Female

DRUGS (7)
  1. LEVOTHYROXINE. [Concomitant]
     Active Substance: LEVOTHYROXINE
     Indication: THYROID DISORDER
     Dosage: 25 MICROGRAMS
     Route: 048
  2. RISPERIDONE. [Concomitant]
     Active Substance: RISPERIDONE
     Indication: PSYCHOTIC DISORDER
     Dosage: 3.75 MG
     Route: 048
  3. CITALOPRAM [Suspect]
     Active Substance: CITALOPRAM HYDROBROMIDE
     Indication: DEPRESSION
     Dosage: OVERDOSE: 40 MG TWICE DAILY
     Route: 048
  4. HYOSCINE HYDROBROMIDE [Concomitant]
     Active Substance: SCOPOLAMINE
     Indication: ADVERSE EVENT
     Dosage: 350 MG
     Route: 048
  5. CLOZARIL [Suspect]
     Active Substance: CLOZAPINE
     Indication: SCHIZOPHRENIA
     Dosage: 100 MG
     Route: 048
     Dates: start: 20080728
  6. RISPERIDONE. [Concomitant]
     Active Substance: RISPERIDONE
     Dosage: 3 MG
     Route: 048
  7. SIMVADOC [Concomitant]
     Indication: PSYCHOTIC DISORDER
     Dosage: 40 MG
     Route: 048

REACTIONS (7)
  - Dyspnoea [Unknown]
  - Prescribed overdose [Unknown]
  - Type 2 diabetes mellitus [Fatal]
  - Discomfort [Unknown]
  - Glycosylated haemoglobin increased [Unknown]
  - Hyperlipidaemia [Unknown]
  - Myocardial ischaemia [Fatal]

NARRATIVE: CASE EVENT DATE: 2010
